FAERS Safety Report 10101591 (Version 2)
Quarter: 2014Q2

REPORT INFORMATION
  Report Type: Spontaneous
  Country: JP (occurrence: JP)
  Receive Date: 20140424
  Receipt Date: 20140515
  Transmission Date: 20141212
  Serious: Yes (Other)
  Sender: FDA-Public Use
  Company Number: JP-JNJFOC-20140415501

PATIENT
  Age: 65 Year
  Sex: Female

DRUGS (3)
  1. TRAMCET [Suspect]
     Indication: PROCEDURAL PAIN
     Dosage: 2 DOSES ON AN AS NEEDED BASIS
     Route: 048
     Dates: start: 20140409, end: 20140410
  2. GRACEVIT [Concomitant]
     Indication: PERIODONTAL INFLAMMATION
     Dosage: 50 MG X2 PER 1 DAY
     Route: 048
     Dates: start: 20140409, end: 20140410
  3. LIPITOR [Concomitant]
     Indication: DYSLIPIDAEMIA
     Route: 048

REACTIONS (1)
  - Loss of consciousness [Recovered/Resolved]
